FAERS Safety Report 8616088-8 (Version None)
Quarter: 2012Q3

REPORT INFORMATION
  Report Type: 
  Country: None (occurrence: None)
  Receive Date: 20120823
  Receipt Date: 20111005
  Transmission Date: 20120928
  Serious: Yes (Hospitalization)
  Sender: FDA-Public Use
  Company Number: FR-ROCHE-1002549

PATIENT
  Age: 63 Year
  Sex: Female

DRUGS (5)
  1. IRINOTECAN HYDROCHLORIDE [Concomitant]
     Indication: GLIOBLASTOMA
     Dosage: DURG WAS REPORTED AS IRINOTECAN KABI
     Route: 042
     Dates: start: 20110601, end: 20110601
  2. IRINOTECAN MAYNE [Suspect]
     Indication: GLIOBLASTOMA
     Route: 042
     Dates: start: 20110420, end: 20110518
  3. AVASTIN [Suspect]
     Indication: GLIOBLASTOMA
     Route: 042
     Dates: start: 20110420
  4. METHYLPREDNISOLONE HEMISUCCINATE [Concomitant]
     Dosage: DRUG: METHYLPREDNISOLONE MYLAN
     Route: 042
     Dates: start: 20110420
  5. ZOFRAN [Concomitant]
     Route: 042
     Dates: start: 20110420

REACTIONS (2)
  - PARTIAL SEIZURES [None]
  - DIARRHOEA [None]
